FAERS Safety Report 8217918-4 (Version None)
Quarter: 2012Q1

REPORT INFORMATION
  Report Type: 
  Country: None (occurrence: None)
  Receive Date: 20120315
  Receipt Date: 20120302
  Transmission Date: 20120608
  Serious: Yes (Death, Life-Threatening, Hospitalization)
  Sender: FDA-Public Use
  Company Number: 201108IM002080

PATIENT
  Age: 12 Year
  Sex: Male

DRUGS (1)
  1. INTERFERON GAMMA NOS [Suspect]
     Indication: CHRONIC GRANULOMATOUS DISEASE
     Dosage: DAILY, SUBCUTANEOUS
     Route: 058
     Dates: start: 20020101, end: 20110101

REACTIONS (6)
  - BRONCHOPULMONARY ASPERGILLOSIS [None]
  - PULMONARY HAEMORRHAGE [None]
  - PNEUMONIA [None]
  - SEPTIC SHOCK [None]
  - SEPSIS [None]
  - BURKHOLDERIA CEPACIA COMPLEX INFECTION [None]
